FAERS Safety Report 5940378-0 (Version None)
Quarter: 2008Q4

REPORT INFORMATION
  Report Type: 
  Country: None (occurrence: None)
  Receive Date: 20081104
  Receipt Date: 20081028
  Transmission Date: 20090506
  Serious: Yes (Hospitalization)
  Sender: FDA-Public Use
  Company Number: JP-ROCHE-587650

PATIENT
  Sex: Male
  Weight: 40.4 kg

DRUGS (5)
  1. CAPECITABINE [Suspect]
     Indication: GASTRIC CANCER
     Dosage: FREQUENCY: BID D1-D14 Q3W, DOSE AS PER PROTOCOL, 2000 MG/M2 DAILY. DOSAGE REPORTED AS 3000MG/DAY
     Route: 048
     Dates: start: 20080715, end: 20080719
  2. CAPECITABINE [Suspect]
     Dosage: FREQUENCY: BID D1-D14 Q3W, DOSE AS PER PROTOCOL, 2000 MG/M2 DAILY.DOSAGE REPORTED AS 2300MG/DAY
     Route: 048
     Dates: start: 20080804
  3. BLINDED BEVACIZUMAB [Suspect]
     Indication: GASTRIC CANCER
     Dosage: FORM: INFUSION, FREQUENCY: D1Q3W.
     Route: 042
     Dates: start: 20080715
  4. CISPLATIN [Suspect]
     Indication: GASTRIC CANCER
     Dosage: FORM: INFUSION, FREQUENCY: D1Q3W, DOSE AS PER PROTOCOL, 80 MG/M2. DOSE: 113.6 MG/BODY
     Route: 042
     Dates: start: 20080715, end: 20080804
  5. CISPLATIN [Suspect]
     Dosage: FORM: INFUSION, FREQUENCY: D1Q3W, DOSE AS PER PROTOCOL, 80 MG/M2.
     Route: 042

REACTIONS (1)
  - PNEUMONIA ASPIRATION [None]
